FAERS Safety Report 7209792-X (Version None)
Quarter: 2011Q1

REPORT INFORMATION
  Report Type: 
  Country: None (occurrence: None)
  Receive Date: 20110104
  Receipt Date: 20101221
  Transmission Date: 20110831
  Serious: Yes (Hospitalization)
  Sender: FDA-Public Use
  Company Number: FR-AMGEN-FRASP2010000106

PATIENT

DRUGS (10)
  1. CORTANCYL [Suspect]
     Indication: RHEUMATOID ARTHRITIS
     Dosage: 5 MG, QD
     Route: 048
  2. ENBREL [Suspect]
     Dosage: 50 MG, WEEKLY
     Route: 058
     Dates: start: 20080801, end: 20100101
  3. METHOTREXATE SODIUM [Suspect]
     Indication: RHEUMATOID ARTHRITIS
     Dosage: 15 MG, QWK
     Route: 042
     Dates: start: 20080801
  4. METHOTREXATE SODIUM [Suspect]
     Dosage: 15 MG, WEEKLY
     Route: 042
     Dates: start: 20080801
  5. SPECIAFOLDINE [Concomitant]
     Dosage: 10 MG, WEEKLY
  6. CONTRACEPTIVE, UNSPECIFIED [Concomitant]
     Dosage: UNK
     Route: 048
     Dates: end: 20100910
  7. ENBREL [Suspect]
     Indication: RHEUMATOID ARTHRITIS
     Dosage: UNKNOWN
     Route: 058
     Dates: start: 20080801, end: 20100101
  8. SPECIAFOLDINE [Concomitant]
     Indication: ANAEMIA
     Dosage: 10 MG, QWK
  9. PROGESTERONE W/ESTROGENS [Concomitant]
     Indication: CONTRACEPTION
     Dosage: UNK
     Dates: end: 20100910
  10. CORTANCYL [Suspect]
     Dosage: 5 MG, 1X/DAY

REACTIONS (1)
  - THROMBOPHLEBITIS [None]
